FAERS Safety Report 4492494-0 (Version None)
Quarter: 2004Q4

REPORT INFORMATION
  Report Type: 
  Country: None (occurrence: None)
  Receive Date: 20041029
  Receipt Date: 20041018
  Transmission Date: 20050328
  Serious: Yes (Other)
  Sender: FDA-Public Use
  Company Number: 2004080063

PATIENT
  Age: 55 Year
  Sex: Female

DRUGS (2)
  1. RELPAX [Suspect]
     Indication: HEADACHE
     Dosage: ORAL
     Route: 048
  2. ALLEGRA-D [Concomitant]

REACTIONS (1)
  - CEREBRAL HAEMORRHAGE [None]
